FAERS Safety Report 6247443-1 (Version None)
Quarter: 2009Q2

REPORT INFORMATION
  Report Type: 
  Country: None (occurrence: None)
  Receive Date: 20090626
  Receipt Date: 20090615
  Transmission Date: 20091009
  Serious: Yes (Other)
  Sender: FDA-Public Use
  Company Number: US-PFIZER INC-2009229056

PATIENT
  Sex: Male

DRUGS (5)
  1. VIAGRA [Suspect]
     Indication: ERECTILE DYSFUNCTION
     Dosage: FREQUENCY: AS NEEDED
  2. GLUCOVANCE [Concomitant]
     Dosage: UNK
  3. LISINOPRIL [Concomitant]
     Dosage: UNK
  4. ASPIRIN [Concomitant]
     Dosage: UNK
  5. PIOGLITAZONE [Concomitant]
     Dosage: UNK

REACTIONS (4)
  - ERECTILE DYSFUNCTION [None]
  - INTERVERTEBRAL DISC PROTRUSION [None]
  - JOINT INJURY [None]
  - PALPITATIONS [None]
